FAERS Safety Report 9664978 (Version 1)
Quarter: 2013Q4

REPORT INFORMATION
  Report Type: Spontaneous
  Country: DK (occurrence: IT)
  Receive Date: 20131101
  Receipt Date: 20131101
  Transmission Date: 20140711
  Serious: Yes (Hospitalization)
  Sender: FDA-Public Use
  Company Number: IT-FRI-1000050652

PATIENT
  Age: 87 Year
  Sex: Female

DRUGS (8)
  1. CITALOPRAM ORAL SOLUTION [Suspect]
     Dosage: 5 GTT
     Route: 048
  2. EN [Suspect]
     Dosage: 8 GTT
     Route: 048
  3. DEPAKIN [Concomitant]
  4. LANOXIN [Concomitant]
  5. CARDIOASPIRIN [Concomitant]
  6. TRIATEC [Concomitant]
  7. LANSOX [Concomitant]
  8. CLEXANE [Concomitant]
     Dosage: 4000 IU

REACTIONS (2)
  - Hyponatraemia [Unknown]
  - Sopor [Unknown]
